FAERS Safety Report 6639458-6 (Version None)
Quarter: 2010Q1

REPORT INFORMATION
  Report Type: 
  Country: None (occurrence: None)
  Receive Date: 20100318
  Receipt Date: 20100310
  Transmission Date: 20100710
  Serious: Yes (Other)
  Sender: FDA-Public Use
  Company Number: US-BAYER-201016413NA

PATIENT
  Sex: Female

DRUGS (2)
  1. MIRENA [Suspect]
     Indication: CONTRACEPTION
     Dosage: FREQUENCY:CONTINUOUS
     Route: 015
     Dates: start: 20100116, end: 20100301
  2. MIRENA [Suspect]
     Dosage: FREQUENCY:CONTINUOUS
     Route: 015
     Dates: start: 20070101, end: 20090501

REACTIONS (4)
  - ABDOMINAL PAIN [None]
  - HYPOMENORRHOEA [None]
  - MENSTRUAL DISORDER [None]
  - POST PROCEDURAL HAEMORRHAGE [None]
